FAERS Safety Report 22296250 (Version 2)
Quarter: 2023Q2

REPORT INFORMATION
  Report Type: Spontaneous
  Country: CZ (occurrence: CZ)
  Receive Date: 20230508
  Receipt Date: 20230606
  Transmission Date: 20230722
  Serious: Yes (Other)
  Sender: FDA-Public Use
  Company Number: CZ-002147023-NVSC2023CZ104355

PATIENT
  Sex: Female

DRUGS (3)
  1. AZACITIDINE [Suspect]
     Active Substance: AZACITIDINE
     Indication: Acute myeloid leukaemia
     Dosage: UNK
     Route: 065
     Dates: start: 202109
  2. CYCLOSPORINE [Suspect]
     Active Substance: CYCLOSPORINE
     Indication: Graft versus host disease in gastrointestinal tract
     Dosage: UNK
     Route: 065
     Dates: start: 2021, end: 202207
  3. CYCLOSPORINE [Suspect]
     Active Substance: CYCLOSPORINE
     Indication: Graft versus host disease in skin

REACTIONS (14)
  - Graft versus host disease in gastrointestinal tract [Recovering/Resolving]
  - Graft versus host disease in skin [Recovering/Resolving]
  - Refeeding syndrome [Unknown]
  - Cachexia [Recovering/Resolving]
  - Oral candidiasis [Recovered/Resolved]
  - Oral pain [Recovered/Resolved]
  - Skin exfoliation [Recovered/Resolved]
  - Dry skin [Unknown]
  - Gait disturbance [Recovered/Resolved]
  - Weight decreased [Recovering/Resolving]
  - Decreased appetite [Recovered/Resolved]
  - Asthenia [Recovering/Resolving]
  - Pruritus [Recovered/Resolved]
  - Fatigue [Recovering/Resolving]

NARRATIVE: CASE EVENT DATE: 20211101
